FAERS Safety Report 6239656-X (Version None)
Quarter: 2009Q2

REPORT INFORMATION
  Report Type: 
  Country: None (occurrence: None)
  Receive Date: 20090622
  Receipt Date: 20090617
  Transmission Date: 20091009
  Serious: Yes (Death, Disabling)
  Sender: FDA-Public Use
  Company Number: US-MERCK-0905USA01898

PATIENT
  Age: 89 Year
  Sex: Male

DRUGS (14)
  1. ZOLINZA [Suspect]
     Indication: MYCOSIS FUNGOIDES
     Route: 048
     Dates: start: 20090311, end: 20090401
  2. AMLODIPINE [Concomitant]
     Route: 065
  3. ARICEPT [Concomitant]
     Route: 065
  4. NAMENDA [Concomitant]
     Route: 065
  5. PREDNISONE [Concomitant]
     Route: 048
  6. ZANTAC [Concomitant]
     Route: 065
  7. PAROXETINE [Concomitant]
     Route: 065
  8. HALDOL [Concomitant]
     Route: 065
  9. COMPAZINE [Concomitant]
     Route: 065
  10. ZOFRAN [Concomitant]
     Route: 065
  11. IBUPROFEN [Concomitant]
     Route: 065
  12. FENTANYL [Concomitant]
     Route: 065
  13. ROXANOL [Concomitant]
     Route: 065
  14. MORPHINE [Concomitant]
     Route: 065

REACTIONS (2)
  - DEATH [None]
  - RENAL FAILURE [None]
